FAERS Safety Report 11133632 (Version 1)
Quarter: 2015Q2

REPORT INFORMATION
  Report Type: Spontaneous
  Country: ES (occurrence: ES)
  Receive Date: 20150523
  Receipt Date: 20150523
  Transmission Date: 20150821
  Serious: Yes (Hospitalization, Other)
  Sender: FDA-Public Use
  Company Number: ES-CIPLA LTD.-2015ES03901

PATIENT

DRUGS (11)
  1. BIPERIDENE RETARD [Suspect]
     Active Substance: BIPERIDEN
     Indication: MENTAL RETARDATION
     Dosage: 4 MG/24 HOURS
  2. TOPIRAMATE. [Suspect]
     Active Substance: TOPIRAMATE
     Indication: AGGRESSION
  3. QUETIAPINE [Suspect]
     Active Substance: QUETIAPINE
     Indication: AGGRESSION
     Dosage: 200 MG, UNK
     Route: 048
  4. RISPERIDONE. [Suspect]
     Active Substance: RISPERIDONE
     Indication: MENTAL RETARDATION
     Dosage: 1 MG/12 HOURS
  5. RIVOTRIL [Suspect]
     Active Substance: CLONAZEPAM
     Indication: AGGRESSION
  6. BIPERIDENE RETARD [Suspect]
     Active Substance: BIPERIDEN
     Indication: AGGRESSION
  7. RIVOTRIL [Suspect]
     Active Substance: CLONAZEPAM
     Indication: MENTAL RETARDATION
     Dosage: 6.5 MG / 24 HOURS, DIVIDED INTO 4 DOSES
  8. TOPIRAMATE. [Suspect]
     Active Substance: TOPIRAMATE
     Indication: MENTAL RETARDATION
     Dosage: 50 MG/8 HOURS
  9. RISPERIDONE. [Suspect]
     Active Substance: RISPERIDONE
     Indication: AGGRESSION
  10. FLURAZEPAM [Suspect]
     Active Substance: FLURAZEPAM\FLURAZEPAM HYDROCHLORIDE
     Indication: MENTAL RETARDATION
     Dosage: 30 MG/24 HOURS
  11. FLURAZEPAM [Suspect]
     Active Substance: FLURAZEPAM\FLURAZEPAM HYDROCHLORIDE
     Indication: AGGRESSION

REACTIONS (3)
  - Rhabdomyolysis [Unknown]
  - Abnormal behaviour [Unknown]
  - Blood creatine phosphokinase decreased [Unknown]
